FAERS Safety Report 7515772-7 (Version None)
Quarter: 2011Q2

REPORT INFORMATION
  Report Type: 
  Country: None (occurrence: None)
  Receive Date: 20110601
  Receipt Date: 20110523
  Transmission Date: 20111010
  Serious: Yes (Hospitalization, Other)
  Sender: FDA-Public Use
  Company Number: FR-B.I. PHARMACEUTICALS,INC./RIDGEFIELD-2011-BP-11774YA

PATIENT
  Sex: Male
  Weight: 90 kg

DRUGS (5)
  1. MICARDIS HCT [Concomitant]
     Indication: HYPERTENSION
     Dates: start: 20101101
  2. MICARDIS HCT [Concomitant]
     Indication: BENIGN PROSTATIC HYPERPLASIA
  3. ALLOPURINOL [Concomitant]
     Indication: HYPERURICAEMIA
  4. TAMSULOSIN HCL [Suspect]
     Indication: BENIGN PROSTATIC HYPERPLASIA
     Route: 048
     Dates: start: 20110328, end: 20110331
  5. ALLOPURINOL [Concomitant]
     Indication: BLOOD URIC ACID
     Dates: start: 20100101

REACTIONS (4)
  - BRAIN NEOPLASM [None]
  - CONFUSIONAL STATE [None]
  - ASTHENIA [None]
  - VERTIGO [None]
